FAERS Safety Report 15110494 (Version 1)
Quarter: 2018Q2

REPORT INFORMATION
  Report Type: Spontaneous
  Country: US (occurrence: US)
  Receive Date: 20180612
  Receipt Date: 20180612
  Transmission Date: 20180711
  Serious: No
  Sender: FDA-Public Use
  Company Number: None

PATIENT
  Age: 26 Year
  Sex: Male
  Weight: 67.8 kg

DRUGS (1)
  1. GENERIC NEXIUM [Suspect]
     Active Substance: ESOMEPRAZOLE MAGNESIUM
     Indication: GASTROOESOPHAGEAL REFLUX DISEASE
     Route: 048
     Dates: start: 20180501, end: 20180508

REACTIONS (3)
  - Diarrhoea [None]
  - Drug ineffective [None]
  - Seizure [None]

NARRATIVE: CASE EVENT DATE: 20180501
